FAERS Safety Report 10557995 (Version 5)
Quarter: 2015Q3

REPORT INFORMATION
  Report Type: Report from Study
  Country: TR (occurrence: TR)
  Receive Date: 20141031
  Receipt Date: 20150707
  Transmission Date: 20151125
  Serious: Yes (Hospitalization)
  Sender: FDA-Public Use
  Company Number: PHHY2014TR028502

PATIENT
  Age: 3 Year
  Sex: Female
  Weight: 14 kg

DRUGS (2)
  1. EXJADE [Suspect]
     Active Substance: DEFERASIROX
     Dosage: 250 MG, QD
     Route: 048
  2. EXJADE [Suspect]
     Active Substance: DEFERASIROX
     Indication: THALASSAEMIA BETA
     Dosage: 250 MG, QD
     Route: 048
     Dates: start: 2013

REACTIONS (13)
  - Haematocoele [Not Recovered/Not Resolved]
  - Nausea [Not Recovered/Not Resolved]
  - Loss of consciousness [Recovering/Resolving]
  - Gastrointestinal infection [Recovering/Resolving]
  - Malnutrition [Recovered/Resolved]
  - Abdominal pain [Recovered/Resolved]
  - Cerebral haemorrhage [Not Recovered/Not Resolved]
  - Cough [Recovered/Resolved]
  - Haematochezia [Not Recovered/Not Resolved]
  - Bronchitis [Recovered/Resolved]
  - Seizure [Recovering/Resolving]
  - Haemoglobin decreased [Recovered/Resolved]
  - Anxiety [Not Recovered/Not Resolved]

NARRATIVE: CASE EVENT DATE: 20140302
